FAERS Safety Report 4297510-7 (Version None)
Quarter: 2004Q1

REPORT INFORMATION
  Report Type: 
  Country: None (occurrence: None)
  Receive Date: 20040213
  Receipt Date: 20040205
  Transmission Date: 20041129
  Serious: Yes (Hospitalization)
  Sender: FDA-Public Use
  Company Number: 2004UW02182

PATIENT
  Age: 63 Year
  Sex: Female
  Weight: 40.8237 kg

DRUGS (7)
  1. PRILOSEC [Suspect]
     Indication: CROHN'S DISEASE
     Dosage: 1 TAB BID PO
     Route: 048
     Dates: start: 20031231, end: 20040205
  2. ALLEGRA [Concomitant]
  3. VITAMIN C [Concomitant]
  4. OSCAL [Concomitant]
  5. TYLENOLCOBALAMIN [Concomitant]
  6. POTASSIUM [Concomitant]
  7. AMBIEN [Concomitant]

REACTIONS (2)
  - GASTROINTESTINAL HAEMORRHAGE [None]
  - HYPERCHLORHYDRIA [None]
